FAERS Safety Report 4592375-8 (Version None)
Quarter: 2005Q1

REPORT INFORMATION
  Report Type: 
  Country: None (occurrence: None)
  Receive Date: 20050228
  Receipt Date: 20050104
  Transmission Date: 20050727
  Serious: No
  Sender: FDA-Public Use
  Company Number: US-BRISTOL-MYERS SQUIBB COMPANY-12812723

PATIENT
  Age: 56 Year
  Sex: Female
  Weight: 73 kg

DRUGS (5)
  1. ABILIFY [Suspect]
     Indication: BIPOLAR DISORDER
     Route: 048
  2. KLONOPIN [Concomitant]
  3. TOPAMAX [Concomitant]
  4. SYNTHROID [Concomitant]
  5. LOESTRIN 1.5/30 [Concomitant]

REACTIONS (3)
  - DYSMENORRHOEA [None]
  - FATIGUE [None]
  - METRORRHAGIA [None]
